FAERS Safety Report 9225279 (Version 7)
Quarter: 2016Q4

REPORT INFORMATION
  Report Type: Spontaneous
  Country: US (occurrence: US)
  Receive Date: 20130411
  Receipt Date: 20161004
  Transmission Date: 20170207
  Serious: Yes (Hospitalization, Other)
  Sender: FDA-Public Use
  Company Number: US-009507513-1304USA003224

PATIENT
  Sex: Female
  Weight: 71.66 kg

DRUGS (5)
  1. FOSAMAX [Suspect]
     Active Substance: ALENDRONATE SODIUM
     Indication: OSTEOPENIA
     Dosage: 10 MG, QAM
     Route: 048
     Dates: start: 19991015
  2. FOSAMAX [Suspect]
     Active Substance: ALENDRONATE SODIUM
     Indication: OSTEOPOROSIS
     Dosage: 70 MG, QW
     Route: 048
     Dates: end: 2008
  3. ALENDRONATE SODIUM. [Suspect]
     Active Substance: ALENDRONATE SODIUM
     Indication: OSTEOPENIA
     Dosage: 70 MG, UNK
     Route: 048
     Dates: start: 20050909, end: 20051222
  4. ALENDRONATE SODIUM. [Suspect]
     Active Substance: ALENDRONATE SODIUM
     Dosage: 70 MG, QW
     Route: 048
     Dates: end: 2008
  5. CALCIUM (UNSPECIFIED) [Concomitant]
     Active Substance: CALCIUM
     Indication: OSTEOPENIA
     Dosage: 1200 MG, DAILY
     Route: 065

REACTIONS (17)
  - Haemorrhoids [Unknown]
  - Rectal haemorrhage [Recovered/Resolved]
  - Diverticulum [Unknown]
  - Wrist fracture [Unknown]
  - Hyperlipidaemia [Unknown]
  - Low turnover osteopathy [Unknown]
  - Papilloma viral infection [Unknown]
  - Chest pain [Unknown]
  - Spinal osteoarthritis [Unknown]
  - Cervical dysplasia [Unknown]
  - Uterine leiomyoma [Unknown]
  - Lactose intolerance [Unknown]
  - Cervical dysplasia [Unknown]
  - Intramedullary rod insertion [Unknown]
  - Anaemia [Unknown]
  - Femur fracture [Unknown]
  - Balance disorder [Unknown]

NARRATIVE: CASE EVENT DATE: 2006
